FAERS Safety Report 17593296 (Version 1)
Quarter: 2020Q1

REPORT INFORMATION
  Report Type: Report from Study
  Country: GB (occurrence: GB)
  Receive Date: 20200327
  Receipt Date: 20200327
  Transmission Date: 20200409
  Serious: Yes (Other)
  Sender: FDA-Public Use
  Company Number: GB-JNJFOC-20200312751

PATIENT
  Sex: Female

DRUGS (1)
  1. STELARA [Suspect]
     Active Substance: USTEKINUMAB
     Indication: PSORIATIC ARTHROPATHY
     Dosage: 90 MG/ 1 ML
     Route: 058
     Dates: start: 20170425

REACTIONS (3)
  - Pharyngitis [Unknown]
  - Ear infection [Unknown]
  - Lower respiratory tract infection [Unknown]
